FAERS Safety Report 8429450-3 (Version None)
Quarter: 2012Q2

REPORT INFORMATION
  Report Type: 
  Country: None (occurrence: None)
  Receive Date: 20120323
  Receipt Date: 20110517
  Transmission Date: 20120825
  Serious: Yes (Other)
  Sender: FDA-Public Use
  Company Number: 163-21880-11042960

PATIENT
  Age: 66 Year
  Sex: Female

DRUGS (4)
  1. AREDIA [Concomitant]
  2. REVLIMID [Suspect]
     Indication: MULTIPLE MYELOMA
     Dosage: 10 MG, 1 IN 2 D, PO
     Route: 048
     Dates: start: 20110308
  3. BLOOD (BLOOD AND RELATED PRODUCTS) [Concomitant]
  4. VELCADE [Concomitant]

REACTIONS (1)
  - FULL BLOOD COUNT DECREASED [None]
